FAERS Safety Report 6106722-9 (Version None)
Quarter: 2009Q1

REPORT INFORMATION
  Report Type: 
  Country: None (occurrence: None)
  Receive Date: 20090305
  Receipt Date: 20090219
  Transmission Date: 20090719
  Serious: No
  Sender: FDA-Public Use
  Company Number: 233228K08USA

PATIENT
  Age: 38 Year
  Sex: Female

DRUGS (4)
  1. REBIF [Suspect]
     Indication: MULTIPLE SCLEROSIS
     Dosage: 44 MCG, 3 IN 1 WEEKS, SUBCUTANEOUS
     Route: 058
     Dates: start: 20080701
  2. NITRO-BID [Concomitant]
  3. NIFEDIPINE [Concomitant]
  4. OXYCODONE HCL [Concomitant]

REACTIONS (1)
  - NO ADVERSE EVENT [None]
